FAERS Safety Report 23841852 (Version 4)
Quarter: 2024Q4

REPORT INFORMATION
  Report Type: Spontaneous
  Country: US (occurrence: US)
  Receive Date: 20240510
  Receipt Date: 20241106
  Transmission Date: 20250114
  Serious: Yes (Other)
  Sender: UCB
  Company Number: US-UCBSA-2024012916

PATIENT
  Sex: Female
  Weight: 45 kg

DRUGS (20)
  1. RYSTIGGO [Suspect]
     Active Substance: ROZANOLIXIZUMAB-NOLI
     Indication: Myasthenia gravis
     Dosage: 420 MILLIGRAM, WEEKLY (QW) (FOR SIX WEEKS, 80 MG/L)
     Route: 058
     Dates: start: 20240308
  2. RYSTIGGO [Suspect]
     Active Substance: ROZANOLIXIZUMAB-NOLI
     Dosage: 240 MILLIGRAM, WEEKLY (QW), STOP DATE 12-APR-2024
     Route: 058
     Dates: start: 2024
  3. RYSTIGGO [Suspect]
     Active Substance: ROZANOLIXIZUMAB-NOLI
     Dosage: UNK
     Route: 058
     Dates: start: 20240419
  4. RYSTIGGO [Suspect]
     Active Substance: ROZANOLIXIZUMAB-NOLI
     Dosage: (CYCLE 2) 420 MILLIGRAM, WEEKLY (QW) (FOR SIX WEEKS, 80 MG/L)
     Route: 058
     Dates: start: 20240614
  5. MESTINON [Concomitant]
     Active Substance: PYRIDOSTIGMINE BROMIDE
     Indication: Product used for unknown indication
     Dosage: UNK
  6. EPINEPHRINESNAP V [Concomitant]
     Indication: Product used for unknown indication
     Dosage: 1 MG/ML INJECTABLE KIT 1 MG
     Route: 030
  7. GAMUNEX-C [Concomitant]
     Active Substance: HUMAN IMMUNOGLOBULIN G
     Indication: Product used for unknown indication
     Dosage: 10% INJECTABLE SOLUTION, LOADING DOSE OVER 3 DAYS, 40 G
     Route: 042
  8. GAMUNEX-C [Concomitant]
     Active Substance: HUMAN IMMUNOGLOBULIN G
     Dosage: 10% INJECTABLE SOLUTION, LOADING DOSE OVER 3 DAYS, 40 G
     Route: 042
  9. MESTINON [Concomitant]
     Active Substance: PYRIDOSTIGMINE BROMIDE
     Indication: Product used for unknown indication
     Dosage: 60 MILLIGRAM, 3X/DAY (TID)
     Route: 048
  10. MESTINON [Concomitant]
     Active Substance: PYRIDOSTIGMINE BROMIDE
     Indication: Product used for unknown indication
     Dosage: UNK, 3X/DAY (TID)
     Route: 048
  11. TOPIRAMATE [Concomitant]
     Active Substance: TOPIRAMATE
     Indication: Migraine
     Dosage: 200 MILLIGRAM ORAL CAPSULE. EXTENDED RELEASE 2 CAP(S). PO 1XDAILY HS
     Route: 048
  12. TOPIRAMATE [Concomitant]
     Active Substance: TOPIRAMATE
     Indication: Focal dyscognitive seizures
  13. BIOFREEZE [Concomitant]
     Active Substance: MENTHOL
     Indication: Pain
     Dosage: 0.2%-3.5% TOPICAL GEL 1 APP TOP, 1XDAILY, PRN: AS NEEDED
     Route: 061
  14. ALENDRONATE SODIUM [Concomitant]
     Active Substance: ALENDRONATE SODIUM
     Indication: Product used for unknown indication
     Dosage: 70 MILLIGRAM
     Route: 048
  15. HUMAN IMMUNOGLOBULIN G [Concomitant]
     Active Substance: HUMAN IMMUNOGLOBULIN G
     Indication: Product used for unknown indication
     Route: 058
  16. PREDNISONE [Concomitant]
     Active Substance: PREDNISONE
     Indication: Product used for unknown indication
     Dosage: 10-20 MG DAILY, ONE (1) TAB(S) BY MOUTH 2X DAILY
     Route: 048
  17. QULIPTA [Concomitant]
     Active Substance: ATOGEPANT
     Indication: Migraine prophylaxis
     Dosage: 60 MILLIGRAM, ONCE DAILY (QD)
     Route: 048
  18. TOPAMAX [Concomitant]
     Active Substance: TOPIRAMATE
     Indication: Migraine
  19. NURTEC ODT [Concomitant]
     Active Substance: RIMEGEPANT SULFATE
     Indication: Migraine
     Dosage: 75 MILLIGRAM
     Route: 048
  20. NURTEC ODT [Concomitant]
     Active Substance: RIMEGEPANT SULFATE
     Indication: Breakthrough pain

REACTIONS (12)
  - Foot fracture [Not Recovered/Not Resolved]
  - Eye swelling [Recovering/Resolving]
  - Rash [Recovered/Resolved]
  - Diarrhoea [Not Recovered/Not Resolved]
  - Petechiae [Not Recovered/Not Resolved]
  - Mass [Recovered/Resolved]
  - Fatigue [Not Recovered/Not Resolved]
  - Ocular hyperaemia [Not Recovered/Not Resolved]
  - Asthenia [Not Recovered/Not Resolved]
  - Device issue [Unknown]
  - Incorrect dose administered [Unknown]
  - Drug ineffective [Unknown]

NARRATIVE: CASE EVENT DATE: 20240101
